FAERS Safety Report 10463626 (Version 2)
Quarter: 2014Q4

REPORT INFORMATION
  Report Type: Spontaneous
  Country: ES (occurrence: ES)
  Receive Date: 20140919
  Receipt Date: 20141007
  Transmission Date: 20150528
  Serious: Yes (Other)
  Sender: FDA-Public Use
  Company Number: ES-ROCHE-1463188

PATIENT
  Age: 77 Year
  Sex: Female

DRUGS (3)
  1. LUCENTIS [Suspect]
     Active Substance: RANIBIZUMAB
     Dosage: REGIMEN # 3
     Route: 050
     Dates: start: 20140416, end: 20140416
  2. LUCENTIS [Suspect]
     Active Substance: RANIBIZUMAB
     Route: 050
  3. LUCENTIS [Suspect]
     Active Substance: RANIBIZUMAB
     Indication: AGE-RELATED MACULAR DEGENERATION
     Dosage: REGIMEN # 1
     Route: 050

REACTIONS (3)
  - Cystoid macular oedema [Unknown]
  - Non-infectious endophthalmitis [Recovered/Resolved]
  - Eye inflammation [Unknown]
